FAERS Safety Report 13260411 (Version 3)
Quarter: 2017Q2

REPORT INFORMATION
  Report Type: Report from Study
  Country: US (occurrence: US)
  Receive Date: 20170222
  Receipt Date: 20170411
  Transmission Date: 20170830
  Serious: Yes (Other)
  Sender: FDA-Public Use
  Company Number: US-BRISTOL-MYERS SQUIBB COMPANY-BMS-2016-084884

PATIENT
  Sex: Female

DRUGS (1)
  1. NIVOLUMAB [Suspect]
     Active Substance: NIVOLUMAB
     Indication: RENAL CELL CARCINOMA
     Dosage: UNK
     Route: 042

REACTIONS (33)
  - Peripheral swelling [Unknown]
  - Dysstasia [Unknown]
  - Dyspnoea [Unknown]
  - Feeling hot [Unknown]
  - Tremor [Unknown]
  - Gait disturbance [Unknown]
  - Thyroid disorder [Unknown]
  - Dysphagia [Unknown]
  - Swollen tongue [Recovering/Resolving]
  - Musculoskeletal pain [Unknown]
  - Thrombosis [Unknown]
  - Fatigue [Recovering/Resolving]
  - Dizziness [Unknown]
  - Pain in extremity [Not Recovered/Not Resolved]
  - Rash [Unknown]
  - Hypoaesthesia [Recovering/Resolving]
  - Muscle spasms [Recovering/Resolving]
  - Dysarthria [Unknown]
  - Decreased appetite [Unknown]
  - Muscular weakness [Recovering/Resolving]
  - Arthralgia [Unknown]
  - Tongue biting [Recovering/Resolving]
  - Sensory disturbance [Recovering/Resolving]
  - Pain [Not Recovered/Not Resolved]
  - Muscle twitching [Unknown]
  - Limb discomfort [Unknown]
  - Facial pain [Recovering/Resolving]
  - Feeling abnormal [Unknown]
  - Musculoskeletal stiffness [Unknown]
  - Hyperaesthesia [Unknown]
  - Joint swelling [Recovered/Resolved]
  - Back pain [Recovered/Resolved]
  - Lip swelling [Unknown]
